FAERS Safety Report 4486350-1 (Version None)
Quarter: 2004Q4

REPORT INFORMATION
  Report Type: 
  Country: None (occurrence: None)
  Receive Date: 20041021
  Receipt Date: 20041007
  Transmission Date: 20050328
  Serious: Yes (Life-Threatening, Hospitalization)
  Sender: FDA-Public Use
  Company Number: F01200403101

PATIENT
  Age: 67 Year
  Sex: Female

DRUGS (4)
  1. (OXALIPLATIN) - SOLUTION - 200 MG [Suspect]
     Indication: COLON CANCER
     Dosage: 200 MG Q3W, INTRAVENOUS NOS
     Route: 042
     Dates: start: 20040906, end: 20040906
  2. (CAPECITABINE) - TABLET - 3000 MG [Suspect]
     Dosage: 3000 MG TWICE A DAY PER ORAL FROM D1TO D15; ORAL
     Route: 048
     Dates: start: 20040907
  3. VALSARTAN [Concomitant]
  4. INDAPAMIDA(INDAPAMIDE) [Concomitant]

REACTIONS (2)
  - ATRIAL FIBRILLATION [None]
  - BRONCHOSPASM [None]
